FAERS Safety Report 15813948 (Version 1)
Quarter: 2019Q1

REPORT INFORMATION
  Report Type: Spontaneous
  Country: US (occurrence: US)
  Receive Date: 20190111
  Receipt Date: 20190111
  Transmission Date: 20190417
  Serious: Yes (Other)
  Sender: FDA-Public Use
  Company Number: None

PATIENT
  Age: 54 Year
  Sex: Female

DRUGS (13)
  1. ALENDRONATE 70 MG WEEKLY [Concomitant]
  2. MODAFINIL 5 MG [Concomitant]
  3. PANTOPRAZOLE 50 MG [Concomitant]
  4. SERTRALINE [Concomitant]
     Active Substance: SERTRALINE HYDROCHLORIDE
  5. AUBAGIO [Suspect]
     Active Substance: TERIFLUNOMIDE
     Indication: MULTIPLE SCLEROSIS
     Dosage: ?          OTHER FREQUENCY:EVERY OTHER DAY;?
     Route: 048
     Dates: start: 20180803, end: 20180929
  6. LEVOTHYROXINE 50 MCG [Concomitant]
     Active Substance: LEVOTHYROXINE
  7. METOCLOPROMIDE 5 MG [Concomitant]
  8. ERGOCALCIFEROL. [Concomitant]
     Active Substance: ERGOCALCIFEROL
  9. CARBAMAZEPINE 200 MG [Concomitant]
     Active Substance: CARBAMAZEPINE
  10. PREGABLIN 50 MG HS [Concomitant]
  11. SIMVASTATIN 40 MG [Concomitant]
     Active Substance: SIMVASTATIN
  12. DIAZEPAM. [Concomitant]
     Active Substance: DIAZEPAM
  13. FLUTICASONE PROPIONATE AEROSOL 55 MCG/ACT [Concomitant]

REACTIONS (5)
  - Pelvic pain [None]
  - Nausea [None]
  - Dizziness [None]
  - Fatigue [None]
  - Oedema peripheral [None]
